APPROVED DRUG PRODUCT: DAUNOXOME
Active Ingredient: DAUNORUBICIN CITRATE
Strength: EQ 2MG BASE/ML
Dosage Form/Route: INJECTABLE, LIPOSOMAL;INJECTION
Application: N050704 | Product #002
Applicant: GALEN LTD
Approved: Apr 8, 1996 | RLD: No | RS: No | Type: DISCN